FAERS Safety Report 8583001-1 (Version None)
Quarter: 2012Q3

REPORT INFORMATION
  Report Type: 
  Country: None (occurrence: None)
  Receive Date: 20120727
  Receipt Date: 20120716
  Transmission Date: 20120928
  Serious: Yes (Other)
  Sender: FDA-Public Use
  Company Number: 1351704

PATIENT
  Sex: Female

DRUGS (2)
  1. (ENZYME INHIBITORS) [Suspect]
     Indication: MALIGNANT MELANOMA
     Dosage: 960 (UNIT NOT REPORTED), TWICE A DAY
  2. PHENYTOIN [Suspect]
     Indication: NERVOUS SYSTEM DISORDER

REACTIONS (2)
  - CONVULSION [None]
  - DRUG INTERACTION [None]
